FAERS Safety Report 6701580-3 (Version None)
Quarter: 2010Q2

REPORT INFORMATION
  Report Type: 
  Country: None (occurrence: None)
  Receive Date: 20100429
  Receipt Date: 20100423
  Transmission Date: 20101027
  Serious: Yes (Other)
  Sender: FDA-Public Use
  Company Number: US-SANOFI-AVENTIS-2010SA024072

PATIENT
  Age: 71 Year
  Sex: Female

DRUGS (3)
  1. PLAVIX [Suspect]
     Indication: CORONARY ARTERY OCCLUSION
     Route: 048
     Dates: start: 20091021, end: 20091129
  2. PLAVIX [Suspect]
     Route: 048
     Dates: start: 20091201
  3. LOPRESSOR [Concomitant]
     Dates: start: 20091021

REACTIONS (1)
  - GALLBLADDER DISORDER [None]
